FAERS Safety Report 12803705 (Version 2)
Quarter: 2016Q4

REPORT INFORMATION
  Report Type: Spontaneous
  Country: US (occurrence: US)
  Receive Date: 20161003
  Receipt Date: 20161024
  Transmission Date: 20170207
  Serious: No
  Sender: FDA-Public Use
  Company Number: US-BAYER-2016-190685

PATIENT
  Sex: Female

DRUGS (1)
  1. ALEVE [Suspect]
     Active Substance: NAPROXEN SODIUM
     Indication: PAIN
     Dosage: UNK
     Route: 048

REACTIONS (5)
  - Abdominal discomfort [None]
  - Abdominal pain upper [None]
  - Chest pain [None]
  - Somnolence [None]
  - Drug ineffective [None]

NARRATIVE: CASE EVENT DATE: 20160928
